FAERS Safety Report 6484571-X (Version None)
Quarter: 2009Q4

REPORT INFORMATION
  Report Type: 
  Country: None (occurrence: None)
  Receive Date: 20091209
  Receipt Date: 20090617
  Transmission Date: 20100525
  Serious: No
  Sender: FDA-Public Use
  Company Number: US-AMGEN-KDL349294

PATIENT
  Sex: Female
  Weight: 81.7 kg

DRUGS (15)
  1. ENBREL [Suspect]
     Indication: RHEUMATOID ARTHRITIS
     Dates: start: 20090127
  2. CYMBALTA [Suspect]
     Route: 048
  3. METHOTREXATE SODIUM [Concomitant]
     Route: 048
  4. SYNTHROID [Concomitant]
  5. FOLIC ACID [Concomitant]
     Route: 048
  6. VITAMIN D [Concomitant]
  7. FISH OIL [Concomitant]
  8. ESTRACE [Concomitant]
  9. NAPROSYN [Concomitant]
     Route: 048
  10. LOVAZA [Concomitant]
     Route: 048
  11. COENZYME Q10 [Concomitant]
     Route: 048
  12. ESTER-C [Concomitant]
  13. CALCIUM [Concomitant]
     Route: 048
  14. MULTI-VITAMINS [Concomitant]
     Route: 048
  15. SYNTHROID [Concomitant]
     Route: 048

REACTIONS (11)
  - DRUG INTERACTION [None]
  - FATIGUE [None]
  - FIBROMYALGIA [None]
  - INJECTION SITE ERYTHEMA [None]
  - INJECTION SITE REACTION [None]
  - INJECTION SITE SWELLING [None]
  - INJECTION SITE WARMTH [None]
  - JOINT RANGE OF MOTION DECREASED [None]
  - PAIN [None]
  - SENSATION OF HEAVINESS [None]
  - VIRAL INFECTION [None]
